FAERS Safety Report 13388669 (Version 1)
Quarter: 2017Q1

REPORT INFORMATION
  Report Type: Spontaneous
  Country: RO (occurrence: RO)
  Receive Date: 20170330
  Receipt Date: 20170330
  Transmission Date: 20170429
  Serious: Yes (Hospitalization, Other)
  Sender: FDA-Public Use
  Company Number: RO-B. BRAUN MEDICAL INC.-1064818

PATIENT
  Age: 81 Year
  Sex: Male

DRUGS (5)
  1. SODIUM CHLORIDE. [Suspect]
     Active Substance: SODIUM CHLORIDE
     Dates: start: 20160907, end: 20160913
  2. VASAPROSTAN [Suspect]
     Active Substance: ALPROSTADIL
     Route: 042
     Dates: start: 20160907, end: 20160913
  3. BROMAZEPAM [Concomitant]
     Active Substance: BROMAZEPAM
     Route: 048
     Dates: start: 20160912
  4. CODEINE PHOSPHATE [Concomitant]
     Active Substance: CODEINE PHOSPHATE
     Route: 048
     Dates: start: 20160907
  5. ASPENTER [Concomitant]
     Active Substance: ASPIRIN
     Route: 048
     Dates: start: 20160907

REACTIONS (7)
  - Hypertension [Recovered/Resolved]
  - Chills [Recovered/Resolved]
  - Psychomotor hyperactivity [Recovered/Resolved]
  - Back pain [Recovered/Resolved]
  - Cyanosis [Recovered/Resolved]
  - Pyrexia [Recovered/Resolved]
  - Oxygen saturation decreased [Recovered/Resolved]

NARRATIVE: CASE EVENT DATE: 20160913
